FAERS Safety Report 10198264 (Version 2)
Quarter: 2014Q2

REPORT INFORMATION
  Report Type: Spontaneous
  Country: JP (occurrence: JP)
  Receive Date: 20140527
  Receipt Date: 20140530
  Transmission Date: 20141212
  Serious: Yes (Other)
  Sender: FDA-Public Use
  Company Number: JP-TAKEDA-2014TJP006212

PATIENT
  Age: 6 Decade
  Sex: Male

DRUGS (1)
  1. TAKEPRON CAPSULES 30 [Suspect]
     Indication: GASTROOESOPHAGEAL REFLUX DISEASE
     Dosage: UNK
     Route: 048

REACTIONS (2)
  - Gastric cancer [Unknown]
  - Gastric polyps [Unknown]
